FAERS Safety Report 23286218 (Version 1)
Quarter: 2023Q4

REPORT INFORMATION
  Report Type: Spontaneous
  Country: US (occurrence: US)
  Receive Date: 20231212
  Receipt Date: 20231212
  Transmission Date: 20240110
  Serious: No
  Sender: FDA-Public Use
  Company Number: US-SA-SAC20231206000589

PATIENT
  Age: 57 Year
  Sex: Female

DRUGS (9)
  1. DUPIXENT [Suspect]
     Active Substance: DUPILUMAB
     Indication: Dermatitis atopic
     Dosage: 300 MG, QOW
     Route: 058
     Dates: start: 20230825
  2. NORETHINDRONE [Concomitant]
     Active Substance: NORETHINDRONE
  3. ALPRAZOLAM [Concomitant]
     Active Substance: ALPRAZOLAM
  4. LAMOTRIGINE [Concomitant]
     Active Substance: LAMOTRIGINE
  5. HYDROXYZINE [Concomitant]
     Active Substance: HYDROXYZINE HYDROCHLORIDE
  6. PROVERA [Concomitant]
     Active Substance: MEDROXYPROGESTERONE ACETATE
     Route: 048
  7. ESTRADIOL [Concomitant]
     Active Substance: ESTRADIOL
  8. NALTREXONE [Concomitant]
     Active Substance: NALTREXONE
  9. FISH OIL [Concomitant]
     Active Substance: FISH OIL

REACTIONS (1)
  - Therapeutic response decreased [Unknown]

NARRATIVE: CASE EVENT DATE: 20230101
